FAERS Safety Report 6360794-5 (Version None)
Quarter: 2009Q3

REPORT INFORMATION
  Report Type: 
  Country: None (occurrence: None)
  Receive Date: 20090915
  Receipt Date: 20090915
  Transmission Date: 20100115
  Serious: Yes (Other)
  Sender: FDA-Public Use
  Company Number: None

PATIENT
  Age: 45 Year
  Sex: Female
  Weight: 75.7507 kg

DRUGS (1)
  1. THYROID TAB [Suspect]
     Indication: AUTOIMMUNE THYROIDITIS
     Dosage: 90 MG 7 DAYS A WEEK
     Dates: start: 20010101, end: 20040921

REACTIONS (3)
  - DRUG INEFFECTIVE [None]
  - MALAISE [None]
  - PRODUCT SUBSTITUTION ISSUE [None]
